FAERS Safety Report 6560539-X (Version None)
Quarter: 2010Q1

REPORT INFORMATION
  Report Type: 
  Country: None (occurrence: None)
  Receive Date: 20100129
  Receipt Date: 20091016
  Transmission Date: 20100710
  Serious: No
  Sender: FDA-Public Use
  Company Number: US-ABBOTT-09P-163-0598851-00

PATIENT
  Sex: Male
  Weight: 83.99 kg

DRUGS (5)
  1. HUMIRA [Suspect]
     Indication: RHEUMATOID ARTHRITIS
     Dates: start: 20090917
  2. HUMIRA [Suspect]
     Indication: ANKYLOSING SPONDYLITIS
  3. ATENOLOL/CHLOR [Concomitant]
     Indication: DRUG USE FOR UNKNOWN INDICATION
     Dosage: 100MG/25MG DAILY
     Route: 048
  4. ASACOL [Concomitant]
     Indication: DRUG USE FOR UNKNOWN INDICATION
     Route: 048
  5. DIAZEPAM [Concomitant]
     Indication: MUSCLE SPASMS
     Dosage: ONE TID AS NEEDED

REACTIONS (3)
  - DYSPNOEA [None]
  - FATIGUE [None]
  - INJECTION SITE ERYTHEMA [None]
